FAERS Safety Report 10484107 (Version 16)
Quarter: 2016Q4

REPORT INFORMATION
  Report Type: Spontaneous
  Country: US (occurrence: US)
  Receive Date: 20140930
  Receipt Date: 20161212
  Transmission Date: 20170206
  Serious: Yes (Hospitalization, Other)
  Sender: FDA-Public Use
  Company Number: US-PFIZER INC-2014265098

PATIENT
  Age: 72 Year
  Sex: Male
  Weight: 102 kg

DRUGS (16)
  1. HYDROCODONE [Concomitant]
     Active Substance: HYDROCODONE
     Indication: PAIN
     Dosage: 5/325, AS NEEDED
  2. LORAZEPAM. [Concomitant]
     Active Substance: LORAZEPAM
     Indication: SLEEP DISORDER
     Dosage: 0.5 MG, UNK
  3. BABY ASPIRIN [Concomitant]
     Active Substance: ASPIRIN
     Indication: CARDIAC FAILURE CONGESTIVE
     Dosage: UNK
  4. PAXIL [Concomitant]
     Active Substance: PAROXETINE HYDROCHLORIDE
     Dosage: UNK
  5. CLOTRIMAZOLE. [Concomitant]
     Active Substance: CLOTRIMAZOLE
     Dosage: UNK
  6. CARVEDILOL. [Concomitant]
     Active Substance: CARVEDILOL
     Indication: CARDIAC FAILURE CONGESTIVE
     Dosage: 6.25 MG, 2X/DAY [B.I.D]
  7. NOVOLOG [Concomitant]
     Active Substance: INSULIN ASPART
     Indication: DIABETES MELLITUS
     Dosage: 15 IU, 3X/DAY [T.I.D. WITH MEAL]
  8. LANTUS [Concomitant]
     Active Substance: INSULIN GLARGINE
     Indication: DIABETES MELLITUS
     Dosage: 38 IU, 1X/DAY [AT BED TIME]
     Route: 058
  9. VITAMIN C [Concomitant]
     Active Substance: ASCORBIC ACID
     Dosage: UNK
  10. IMDUR [Concomitant]
     Active Substance: ISOSORBIDE MONONITRATE
     Indication: CARDIAC FAILURE CONGESTIVE
     Dosage: 30 MG, UNK
  11. SUTENT [Suspect]
     Active Substance: SUNITINIB MALATE
     Indication: RENAL CELL CARCINOMA STAGE IV
     Dosage: 50 MG DAILY, CYCLIC
     Route: 048
     Dates: start: 20140922, end: 201411
  12. SUTENT [Suspect]
     Active Substance: SUNITINIB MALATE
     Dosage: 37.5 MG, CYCLIC (28 DAYS ON AND 14 DAYS OFF)
     Route: 048
     Dates: start: 201411, end: 20150410
  13. VITAMIN D [Concomitant]
     Active Substance: CHOLECALCIFEROL
     Dosage: UNK
  14. SUTENT [Suspect]
     Active Substance: SUNITINIB MALATE
     Dosage: 25 MG, CYCLIC (28 DAYS ON/14 DAYS OFF)
     Route: 048
     Dates: start: 20150507
  15. SUTENT [Suspect]
     Active Substance: SUNITINIB MALATE
     Dosage: 25 MG, 1X/DAY
     Route: 048
  16. LISINOPRIL. [Concomitant]
     Active Substance: LISINOPRIL
     Indication: CARDIAC FAILURE CONGESTIVE
     Dosage: 5 MG, UNK

REACTIONS (46)
  - Dysgeusia [Recovering/Resolving]
  - Burning sensation [Recovering/Resolving]
  - Weight increased [Unknown]
  - Temperature intolerance [Unknown]
  - Blood pressure increased [Recovered/Resolved]
  - Diarrhoea [Recovered/Resolved]
  - Pain [Unknown]
  - Hair colour changes [Unknown]
  - Hair growth abnormal [Unknown]
  - Nervous system disorder [Unknown]
  - Pain in extremity [Unknown]
  - Bladder disorder [Unknown]
  - Diabetes mellitus [Unknown]
  - Renal cell carcinoma stage IV [Unknown]
  - Blood pressure fluctuation [Recovered/Resolved]
  - Skin discolouration [Unknown]
  - Gastrooesophageal reflux disease [Unknown]
  - Asthenia [Recovered/Resolved]
  - Nausea [Recovered/Resolved]
  - Dyspnoea [Unknown]
  - Insomnia [Recovering/Resolving]
  - Skin disorder [Unknown]
  - Oral pain [Unknown]
  - Vomiting [Not Recovered/Not Resolved]
  - Disease progression [Unknown]
  - Anxiety [Recovering/Resolving]
  - Macule [Unknown]
  - Oral pain [Not Recovered/Not Resolved]
  - Feeling abnormal [Unknown]
  - Weight decreased [Recovering/Resolving]
  - Erythema [Unknown]
  - Nervousness [Unknown]
  - Contusion [Unknown]
  - Dry skin [Unknown]
  - Anorectal discomfort [Unknown]
  - Headache [Unknown]
  - Oral pain [Recovering/Resolving]
  - Rash [Recovered/Resolved]
  - Nodule [Unknown]
  - Decreased appetite [Recovering/Resolving]
  - Dehydration [Unknown]
  - Nausea [Not Recovered/Not Resolved]
  - Dry mouth [Recovering/Resolving]
  - Glossodynia [Unknown]
  - Pruritus [Recovered/Resolved]
  - Fatigue [Unknown]
